FAERS Safety Report 8341429-9 (Version None)
Quarter: 2012Q2

REPORT INFORMATION
  Report Type: 
  Country: None (occurrence: None)
  Receive Date: 20120507
  Receipt Date: 20120425
  Transmission Date: 20120825
  Serious: Yes (Hospitalization, Disabling)
  Sender: FDA-Public Use
  Company Number: US-MERCK-1203USA03354

PATIENT
  Age: 63 Year
  Sex: Female
  Weight: 77 kg

DRUGS (14)
  1. ALENDRONATE SODIUM [Suspect]
     Indication: OSTEOPENIA
     Route: 048
     Dates: start: 20021201, end: 20110801
  2. FOSAMAX [Suspect]
     Route: 048
     Dates: start: 20001108
  3. ALENDRONATE SODIUM [Suspect]
     Route: 048
     Dates: start: 20010508
  4. ALENDRONATE SODIUM [Suspect]
     Route: 048
     Dates: start: 20010508
  5. ALENDRONATE SODIUM [Suspect]
     Route: 048
     Dates: start: 20100221, end: 20110728
  6. FOSAMAX [Suspect]
     Indication: OSTEOPOROSIS
     Route: 048
     Dates: start: 20021209, end: 20110801
  7. ALENDRONATE SODIUM [Suspect]
     Indication: OSTEOPOROSIS
     Route: 048
     Dates: start: 20021201, end: 20110801
  8. FOSAMAX PLUS D [Suspect]
     Indication: OSTEOPOROSIS
     Route: 048
     Dates: start: 20070401
  9. ALENDRONATE SODIUM [Suspect]
     Route: 048
     Dates: start: 20100221, end: 20110728
  10. FOSAMAX [Suspect]
     Indication: BONE DENSITY ABNORMAL
     Route: 048
     Dates: start: 20021209, end: 20110801
  11. FOSAMAX [Suspect]
     Route: 048
     Dates: start: 20101001, end: 20110701
  12. FOSAMAX [Suspect]
     Route: 048
     Dates: start: 20001108
  13. PAXIL [Concomitant]
     Indication: DEPRESSION
     Route: 065
  14. FOSAMAX [Suspect]
     Route: 048
     Dates: start: 20101001, end: 20110701

REACTIONS (22)
  - ADENOIDAL DISORDER [None]
  - FEMUR FRACTURE [None]
  - UPPER LIMB FRACTURE [None]
  - PAIN IN EXTREMITY [None]
  - ANXIETY [None]
  - BURSITIS [None]
  - SPINAL FRACTURE [None]
  - HAEMATOCRIT DECREASED [None]
  - LIMB ASYMMETRY [None]
  - HYPERCHOLESTEROLAEMIA [None]
  - TONSILLAR DISORDER [None]
  - HYPERTENSION [None]
  - ECZEMA EYELIDS [None]
  - OSTEOPOROSIS [None]
  - BONE DENSITY DECREASED [None]
  - STRESS [None]
  - AFFECTIVE DISORDER [None]
  - MUSCULOSKELETAL DISORDER [None]
  - HAEMOGLOBIN DECREASED [None]
  - FALL [None]
  - CHEST PAIN [None]
  - STRESS FRACTURE [None]
